FAERS Safety Report 4915857-5 (Version None)
Quarter: 2006Q1

REPORT INFORMATION
  Report Type: 
  Country: None (occurrence: None)
  Receive Date: 20060214
  Receipt Date: 20060206
  Transmission Date: 20060701
  Serious: Yes (Death, Hospitalization, Other)
  Sender: FDA-Public Use
  Company Number: 163-20785-05090025

PATIENT
  Age: 56 Year
  Sex: Female

DRUGS (13)
  1. THALOMID [Suspect]
     Indication: MULTIPLE MYELOMA
     Dosage: 200 MG, DAILY, ORAL  : 200 MG, DAILY/28 DAY CYCLE, ORAL
     Route: 048
     Dates: start: 20030501, end: 20031101
  2. THALOMID [Suspect]
     Indication: MULTIPLE MYELOMA
     Dosage: 200 MG, DAILY, ORAL  : 200 MG, DAILY/28 DAY CYCLE, ORAL
     Route: 048
     Dates: start: 20050601, end: 20050916
  3. DEXAMETHASONE SODIUM PHOSPHATE [Concomitant]
  4. ADRIAMYCIN PFS [Concomitant]
  5. CYTOXAN [Concomitant]
  6. ETOPOSIDE [Concomitant]
  7. ALLOPURINOL [Concomitant]
  8. INDERAL [Concomitant]
  9. NEURONTIN [Concomitant]
  10. PROTONIX [Concomitant]
  11. COLACE (DOCUSATE SODIUM) [Concomitant]
  12. TRAMADOL HCL [Concomitant]
  13. COMPAZINE [Concomitant]

REACTIONS (7)
  - FEBRILE NEUTROPENIA [None]
  - LEUKAEMIA PLASMACYTIC [None]
  - MALIGNANT NEOPLASM PROGRESSION [None]
  - MULTIPLE MYELOMA [None]
  - NEUROPATHY [None]
  - SEPSIS [None]
  - WHITE BLOOD CELL COUNT DECREASED [None]
